FAERS Safety Report 4808978-9 (Version None)
Quarter: 2005Q4

REPORT INFORMATION
  Report Type: 
  Country: None (occurrence: None)
  Receive Date: 20051025
  Receipt Date: 20051017
  Transmission Date: 20060501
  Serious: Yes (Other)
  Sender: FDA-Public Use
  Company Number: US-ROCHE-421624

PATIENT
  Age: 66 Year
  Sex: Male

DRUGS (2)
  1. PEGASYS [Suspect]
     Dosage: ROUTE REPORTED AS INJ (INJECTABLE).
     Route: 050
     Dates: start: 20050318, end: 20050929
  2. COPEGUS [Suspect]
     Route: 048
     Dates: start: 20050318, end: 20050929

REACTIONS (2)
  - AMMONIA INCREASED [None]
  - EXOSTOSIS [None]
